FAERS Safety Report 26040812 (Version 2)
Quarter: 2025Q4

REPORT INFORMATION
  Report Type: Spontaneous
  Country: JP (occurrence: JP)
  Receive Date: 20251113
  Receipt Date: 20251125
  Transmission Date: 20260118
  Serious: Yes (Death)
  Sender: CHEPLAPHARM
  Company Number: JP-CHEPLA-2025012862

PATIENT
  Age: 63 Year
  Sex: Female

DRUGS (14)
  1. GANCICLOVIR [Suspect]
     Active Substance: GANCICLOVIR
     Indication: Cytomegalovirus infection
     Dosage: (IV DRIP) ?DAILY DOSE: 5 MILLIGRAM/KG
     Route: 042
  2. PREDNISOLONE ACETATE [Concomitant]
     Active Substance: PREDNISOLONE ACETATE
  3. TEICOPLANIN [Concomitant]
     Active Substance: TEICOPLANIN
  4. FILGOTINIB MALEATE [Concomitant]
     Active Substance: FILGOTINIB MALEATE
  5. IGURATIMOD [Concomitant]
     Active Substance: IGURATIMOD
  6. INFLIXIMAB [Concomitant]
     Active Substance: INFLIXIMAB
  7. ETANERCEPT [Concomitant]
     Active Substance: ETANERCEPT
  8. GOLIMUMAB [Concomitant]
     Active Substance: GOLIMUMAB
  9. TOCILIZUMAB [Concomitant]
     Active Substance: TOCILIZUMAB
  10. CILNIDIPINE [Concomitant]
     Active Substance: CILNIDIPINE
  11. PILSICAINIDE HYDROCHLORIDE [Concomitant]
     Active Substance: PILSICAINIDE HYDROCHLORIDE
  12. VONOPRAZAN FUMARATE [Concomitant]
     Active Substance: VONOPRAZAN FUMARATE
  13. RAMOSETRON HYDROCHLORIDE [Concomitant]
     Active Substance: RAMOSETRON HYDROCHLORIDE
  14. METHYLPREDNISOLONE [Concomitant]
     Active Substance: METHYLPREDNISOLONE

REACTIONS (3)
  - Cardiac failure [Fatal]
  - Device related infection [Fatal]
  - Off label use [Unknown]

NARRATIVE: CASE EVENT DATE: 20250930
